FAERS Safety Report 4364322-5 (Version None)
Quarter: 2004Q2

REPORT INFORMATION
  Report Type: 
  Country: None (occurrence: None)
  Receive Date: 20040525
  Receipt Date: 20030627
  Transmission Date: 20050107
  Serious: No
  Sender: FDA-Public Use
  Company Number: US-BRISTOL-MYERS SQUIBB COMPANY-12313102

PATIENT
  Age: 51 Year
  Sex: Male
  Weight: 63 kg

DRUGS (3)
  1. CYTOXAN [Suspect]
     Indication: NON-HODGKIN'S LYMPHOMA
     Dosage: EVENT OCCURRED AT CYCLE 2
     Route: 042
     Dates: start: 20030601, end: 20031106
  2. VINCRISTINE [Concomitant]
     Indication: NON-HODGKIN'S LYMPHOMA
     Route: 042
     Dates: start: 20030601, end: 20030601
  3. CITRUCEL [Concomitant]

REACTIONS (4)
  - GLOSSODYNIA [None]
  - HYPOAESTHESIA ORAL [None]
  - TONGUE DESQUAMATION [None]
  - TONGUE ULCERATION [None]
